FAERS Safety Report 12775399 (Version 1)
Quarter: 2016Q3

REPORT INFORMATION
  Report Type: Report from Study
  Country: US (occurrence: US)
  Receive Date: 20160923
  Receipt Date: 20160923
  Transmission Date: 20161109
  Serious: Yes (Hospitalization, Other)
  Sender: FDA-Public Use
  Company Number: US-BAXALTA-2014BAX047295

PATIENT
  Sex: Female

DRUGS (1)
  1. IMMUNOGLOBULIN, NORMAL HUMAN [Suspect]
     Active Substance: HUMAN IMMUNOGLOBULIN G
     Indication: PRIMARY IMMUNODEFICIENCY SYNDROME
     Dosage: UNK, 1X A MONTH
     Route: 042

REACTIONS (4)
  - Atrial fibrillation [Unknown]
  - Malaise [Unknown]
  - Hypersensitivity [Unknown]
  - Blood pressure increased [Unknown]
